FAERS Safety Report 19967432 (Version 1)
Quarter: 2021Q4

REPORT INFORMATION
  Report Type: Spontaneous
  Country: US (occurrence: US)
  Receive Date: 20211019
  Receipt Date: 20211019
  Transmission Date: 20220303
  Serious: Yes (Disabling)
  Sender: FDA-Public Use
  Company Number: US-TEVA-2021-US-1966477

PATIENT
  Age: 62 Year
  Sex: Female
  Weight: 71.66 kg

DRUGS (11)
  1. DOCETAXEL [Suspect]
     Active Substance: DOCETAXEL
     Indication: Breast cancer female
     Dosage: STRENGTH: 75MG/M2; DOSE: 130MG; FREQUENCY: EVERY THREE WEEKS
     Route: 041
     Dates: start: 20140513, end: 20140513
  2. DOCETAXEL [Suspect]
     Active Substance: DOCETAXEL
     Dosage: STRENGTH: 75MG/M2; DOSE: 130MG; FREQUENCY: EVERY THREE WEEKS
     Route: 041
     Dates: start: 20140603, end: 20140603
  3. DOCETAXEL [Suspect]
     Active Substance: DOCETAXEL
     Dosage: STRENGTH: 75MG/M2; DOSE: 130MG; FREQUENCY: EVERY THREE WEEKS
     Route: 041
     Dates: start: 20140626, end: 20140626
  4. DOCETAXEL [Suspect]
     Active Substance: DOCETAXEL
     Dosage: STRENGTH: 75MG/M2; DOSE: 130MG; FREQUENCY: EVERY THREE WEEKS
     Route: 041
     Dates: start: 20140717, end: 20140717
  5. PACLITAXEL [Suspect]
     Active Substance: PACLITAXEL
     Indication: Breast cancer female
     Route: 042
  6. CYTOXAN [Suspect]
     Active Substance: CYCLOPHOSPHAMIDE
     Indication: Breast cancer female
     Dosage: STRENGTH: 600MG/M2; DOSE: 1100MG; NO OF CYCLES: 04
     Route: 041
     Dates: start: 20140513, end: 20140717
  7. ARIMIDEX [Concomitant]
     Active Substance: ANASTROZOLE
     Route: 065
     Dates: start: 20000101
  8. FEMARA [Concomitant]
     Active Substance: LETROZOLE
     Route: 065
     Dates: start: 20000101
  9. CRESTOR [Concomitant]
     Active Substance: ROSUVASTATIN CALCIUM
     Route: 065
  10. LIPITOR [Concomitant]
     Active Substance: ATORVASTATIN CALCIUM
     Route: 065
  11. OMEPRAZOLE [Concomitant]
     Active Substance: OMEPRAZOLE
     Route: 065

REACTIONS (8)
  - Alopecia areata [Not Recovered/Not Resolved]
  - Madarosis [Not Recovered/Not Resolved]
  - Hair texture abnormal [Not Recovered/Not Resolved]
  - Hair colour changes [Not Recovered/Not Resolved]
  - Nausea [Unknown]
  - Abdominal discomfort [Unknown]
  - Flushing [Unknown]
  - Hypertension [Unknown]

NARRATIVE: CASE EVENT DATE: 20140601
